FAERS Safety Report 6424113-8 (Version None)
Quarter: 2009Q4

REPORT INFORMATION
  Report Type: 
  Country: None (occurrence: None)
  Receive Date: 20091029
  Receipt Date: 20091015
  Transmission Date: 20100525
  Serious: Yes (Life-Threatening)
  Sender: FDA-Public Use
  Company Number: 8053650

PATIENT
  Age: 24 Year
  Sex: Male
  Weight: 100 kg

DRUGS (8)
  1. XUSAL [Suspect]
     Dosage: 250 MG ONCE
     Dates: start: 20091015
  2. AMOXILLIN [Suspect]
     Dosage: 10000 MG ONCE
     Dates: start: 20091015
  3. BUSCOPAN /00008702/ [Suspect]
     Dosage: 200 MG ONCE
     Dates: start: 20091015
  4. KEPINOL [Suspect]
     Dosage: ONCE
     Dates: start: 20091015
  5. MYDOCALM /00293001/ [Suspect]
     Dosage: 2400 MG ONCE
     Dates: start: 20091015
  6. NOVALGIN /00039501/ [Suspect]
     Dosage: 15000 MG ONCE
     Dates: start: 20091015
  7. PARACETAMOL [Suspect]
     Dosage: 15000 MG ONCE
     Dates: start: 20091015
  8. VOLTAREN [Suspect]
     Dosage: 3000 MG ONCE
     Dates: start: 20091015

REACTIONS (3)
  - MULTIPLE DRUG OVERDOSE [None]
  - SUICIDAL BEHAVIOUR [None]
  - SUICIDE ATTEMPT [None]
